FAERS Safety Report 6452580-2 (Version None)
Quarter: 2009Q4

REPORT INFORMATION
  Report Type: 
  Country: None (occurrence: None)
  Receive Date: 20091124
  Receipt Date: 20091117
  Transmission Date: 20100525
  Serious: Yes (Death)
  Sender: FDA-Public Use
  Company Number: GB-RANBAXY-2009RR-28980

PATIENT
  Age: 45 Year
  Sex: Female

DRUGS (6)
  1. AMITRIPTYLINE HCL [Suspect]
     Indication: DRUG USE FOR UNKNOWN INDICATION
  2. CODEINE [Suspect]
     Indication: DRUG USE FOR UNKNOWN INDICATION
  3. ORAMORPH SR [Suspect]
     Indication: DRUG USE FOR UNKNOWN INDICATION
  4. OXYNORM [Suspect]
     Indication: DRUG USE FOR UNKNOWN INDICATION
  5. PARACETAMOL [Suspect]
     Indication: DRUG USE FOR UNKNOWN INDICATION
  6. TRAMADOL HCL [Suspect]
     Indication: DRUG USE FOR UNKNOWN INDICATION

REACTIONS (3)
  - DEATH [None]
  - DRUG TOXICITY [None]
  - MULTIPLE DRUG OVERDOSE [None]
